FAERS Safety Report 24387410 (Version 1)
Quarter: 2024Q4

REPORT INFORMATION
  Report Type: Spontaneous
  Country: FR (occurrence: FR)
  Receive Date: 20241002
  Receipt Date: 20241002
  Transmission Date: 20250114
  Serious: Yes (Hospitalization, Disabling)
  Sender: MYLAN
  Company Number: FR-ROCHE-10000076093

PATIENT
  Age: 80 Year
  Sex: Male

DRUGS (11)
  1. OXALIPLATIN [Suspect]
     Active Substance: OXALIPLATIN
     Indication: Colorectal cancer
     Dosage: 174 MILLIGRAM
     Route: 065
     Dates: start: 20220621
  2. OXALIPLATIN [Suspect]
     Active Substance: OXALIPLATIN
     Dosage: 174 MILLIGRAM (DATE OF MOST RECENT DOSE PRIOR TO SAE WAS 26/SEP/2023. CYCLE NO. 23)
     Route: 065
     Dates: start: 20230926
  3. CAPECITABINE [Suspect]
     Active Substance: CAPECITABINE
     Indication: Colorectal cancer
     Dosage: 49000 MILLIGRAM
     Route: 065
     Dates: start: 20220621
  4. CAPECITABINE [Suspect]
     Active Substance: CAPECITABINE
     Dosage: 49000 MILLIGRAM (DATE OF MOST RECENT DOSE PRIOR TO SAE WAS 26/SEP/2023. CYCLE NO 23)
     Route: 065
     Dates: start: 20230926
  5. ATEZOLIZUMAB [Suspect]
     Active Substance: ATEZOLIZUMAB
     Indication: Colorectal cancer
     Dosage: 1200 MILLIGRAM
     Route: 065
     Dates: start: 20220621
  6. ATEZOLIZUMAB [Suspect]
     Active Substance: ATEZOLIZUMAB
     Dosage: 1200 MILLIGRAM (DATE OF MOST RECENT DOSE PRIOR TO SAE WAS 26/SEP/2023. CYCLE NO. 23)
     Route: 065
     Dates: start: 20230926
  7. BEVACIZUMAB [Suspect]
     Active Substance: BEVACIZUMAB
     Indication: Colorectal cancer
     Dosage: 520 MILLIGRAM
     Route: 065
  8. BEVACIZUMAB [Suspect]
     Active Substance: BEVACIZUMAB
     Dosage: 520 MILLIGRAM (DATE OF MOST RECENT DOSE PRIOR TO SAE WAS 26/SEP/2023. CYCLE NO. 23)
     Route: 065
     Dates: start: 20230926
  9. ENALAPRIL MALEATE\LERCANIDIPINE HYDROCHLORIDE [Concomitant]
     Active Substance: ENALAPRIL MALEATE\LERCANIDIPINE HYDROCHLORIDE
     Dosage: 20 MILLIGRAM
     Route: 065
  10. BROMAZEPAM [Concomitant]
     Active Substance: BROMAZEPAM
     Dosage: 3 MILLIGRAM
     Route: 065
  11. LIPTRUZET [Concomitant]
     Active Substance: ATORVASTATIN CALCIUM\EZETIMIBE
     Dosage: 40 MILLIGRAM
     Route: 065

REACTIONS (1)
  - Drug-induced liver injury [Not Recovered/Not Resolved]

NARRATIVE: CASE EVENT DATE: 20240405
